FAERS Safety Report 8437114-5 (Version None)
Quarter: 2012Q2

REPORT INFORMATION
  Report Type: 
  Country: None (occurrence: None)
  Receive Date: 20120614
  Receipt Date: 20120509
  Transmission Date: 20120825
  Serious: Yes (Other)
  Sender: FDA-Public Use
  Company Number: US-AMGEN-USASP2011010588

PATIENT
  Age: 63 Year
  Sex: Male
  Weight: 72.562 kg

DRUGS (6)
  1. ASPIRIN [Concomitant]
     Dosage: UNK
  2. ASPIRIN [Concomitant]
  3. FLOMAX [Concomitant]
  4. PERCOCET [Concomitant]
  5. PROSCAR [Concomitant]
  6. PROLIA [Suspect]
     Indication: OSTEOPOROSIS
     Dosage: 60 MG, Q6MO
     Dates: start: 20101101

REACTIONS (1)
  - BONE PAIN [None]
